FAERS Safety Report 5592694-2 (Version None)
Quarter: 2007Q4

REPORT INFORMATION
  Report Type: 
  Country: None (occurrence: None)
  Receive Date: 20071218
  Receipt Date: 20061227
  Transmission Date: 20080405
  Serious: Yes (Hospitalization, Other)
  Sender: FDA-Public Use
  Company Number: 2006109654

PATIENT
  Age: 62 Year
  Sex: Female
  Weight: 49.9 kg

DRUGS (1)
  1. BEXTRA [Suspect]
     Indication: ARTHRITIS
     Dosage: 20 MG (20 MG, 1 IN 1 D), ORAL
     Route: 048
     Dates: start: 20020813, end: 20041007

REACTIONS (4)
  - ANXIETY [None]
  - ASTHENIA [None]
  - INSOMNIA [None]
  - MYOCARDIAL INFARCTION [None]
